FAERS Safety Report 20657162 (Version 1)
Quarter: 2022Q1

REPORT INFORMATION
  Report Type: Spontaneous
  Country: CA (occurrence: CA)
  Receive Date: 20220331
  Receipt Date: 20220331
  Transmission Date: 20220423
  Serious: Yes (Death, Hospitalization, Other)
  Sender: FDA-Public Use
  Company Number: CA-SAMSUNG BIOEPIS-SB-2022-07829

PATIENT
  Age: 75 Year
  Sex: Male
  Weight: 44 kg

DRUGS (2)
  1. INFLIXIMAB [Suspect]
     Active Substance: INFLIXIMAB
     Indication: Crohn^s disease
     Route: 042
  2. PREDNISONE [Concomitant]
     Active Substance: PREDNISONE
     Indication: Product used for unknown indication
     Route: 065

REACTIONS (12)
  - Death [Fatal]
  - Aggression [Fatal]
  - Asthenia [Fatal]
  - Condition aggravated [Fatal]
  - Decreased appetite [Fatal]
  - Delusion [Fatal]
  - Dyspnoea [Fatal]
  - Loss of consciousness [Fatal]
  - Malaise [Fatal]
  - Suicide threat [Fatal]
  - Vomiting [Fatal]
  - Weight decreased [Fatal]
